FAERS Safety Report 5174425-3 (Version None)
Quarter: 2006Q4

REPORT INFORMATION
  Report Type: 
  Country: None (occurrence: None)
  Receive Date: 20061214
  Receipt Date: 20060925
  Transmission Date: 20070319
  Serious: Yes (Death, Life-Threatening)
  Sender: FDA-Public Use
  Company Number: CA-NOVOPROD-257240

PATIENT
  Sex: Male
  Weight: 109 kg

DRUGS (45)
  1. NOVOSEVEN [Suspect]
     Indication: TRAUMATIC HAEMORRHAGE
     Dosage: 3 DOSES
     Route: 042
     Dates: start: 20060923, end: 20060923
  2. ANCEF [Concomitant]
     Dosage: 1 G, QD
     Route: 042
     Dates: start: 20060923
  3. GENTAMYCIN                         /00047101/ [Concomitant]
     Dosage: 80 MG, QD
     Route: 042
     Dates: start: 20060923
  4. RANITIDINE [Concomitant]
     Dosage: 50 MG, QD
     Route: 042
     Dates: start: 20060923
  5. RANITIDINE [Concomitant]
     Dosage: 150 MG, QD
     Route: 048
     Dates: start: 20061003, end: 20061011
  6. ATROVENT [Concomitant]
     Dosage: 8 PUFFS
     Dates: start: 20060923, end: 20061011
  7. VENTOLIN [Concomitant]
     Dosage: 8 PUFFS
     Dates: start: 20060923, end: 20061011
  8. TYLENOL                            /00020001/ [Concomitant]
     Dosage: 500 MG, QD
     Route: 048
     Dates: start: 20060923
  9. TYLENOL                            /00020001/ [Concomitant]
     Dosage: 1000 MG, UNK
     Dates: start: 20060923, end: 20061011
  10. GABAPENTIN [Concomitant]
     Dosage: 100 MG, QD
     Route: 048
     Dates: start: 20060923, end: 20061011
  11. SUCCINYLCHOLINE CHLORIDE [Concomitant]
     Dosage: 100 MG, QD
     Route: 042
     Dates: start: 20060923
  12. NIACIN [Concomitant]
     Dosage: UNK, UNK
     Route: 042
     Dates: start: 20060923
  13. FENTANYL [Concomitant]
     Route: 042
     Dates: start: 20060923
  14. PENTASPAN [Concomitant]
     Dosage: 500 UNK, UNK
     Route: 042
  15. MAGNESIUM SULFATE [Concomitant]
     Dosage: UNK, UNK
     Route: 042
     Dates: start: 20060923
  16. LEVOPHED [Concomitant]
     Dosage: 300 MG, QD
     Dates: start: 20060924, end: 20060924
  17. VASOPRESSIN [Concomitant]
     Dosage: 24 U, QD
     Dates: start: 20060924, end: 20060924
  18. ZANTAC [Concomitant]
     Dosage: 150 MG, QD
     Route: 048
     Dates: start: 20061002
  19. FRAGMIN                            /00889602/ [Concomitant]
     Dosage: 10000 UNITS
     Route: 058
     Dates: start: 20061003, end: 20061009
  20. COLACE [Concomitant]
     Dosage: 200 MG, QD
     Route: 048
     Dates: start: 20061004, end: 20061011
  21. FLAGYL                             /00012501/ [Concomitant]
     Dosage: 500 MG, QD
     Route: 042
     Dates: start: 20061005, end: 20061012
  22. CIPRO                              /00697201/ [Concomitant]
     Dosage: 400 MG, QD
     Route: 042
     Dates: start: 20061005, end: 20061012
  23. DILAUDID [Concomitant]
     Dosage: .1 MG, QD
     Route: 042
     Dates: start: 20061002, end: 20061012
  24. MORPHINE [Concomitant]
     Dosage: 1-5 MG
     Route: 042
     Dates: start: 20061005
  25. VANCOMYCIN [Concomitant]
     Dosage: 1 G, UNK
     Route: 042
     Dates: start: 20061001, end: 20061012
  26. DALTEPARIN SODIUM [Concomitant]
     Dosage: 10000 UNK, QD
     Route: 058
     Dates: start: 20061003
  27. CELEBREX [Concomitant]
     Dosage: 200 MG, QD
     Route: 048
     Dates: start: 20061002, end: 20061011
  28. SPIRONOLACTONE [Concomitant]
     Dosage: 100 MG, UNK
     Route: 048
     Dates: start: 20061007, end: 20061011
  29. DILANID [Concomitant]
     Dosage: .2 MG, UNK
     Route: 042
     Dates: start: 20061002
  30. LASIX [Concomitant]
     Dosage: 100 MG, UNK
     Route: 042
     Dates: start: 20061006, end: 20061007
  31. BACLOFEN [Concomitant]
     Dosage: 15 MG, UNK
     Route: 048
     Dates: start: 20061007, end: 20061007
  32. CALCIUM CHLORIDE                   /00203801/ [Concomitant]
     Dosage: 1 G, QD
     Route: 042
     Dates: start: 20061007, end: 20061007
  33. POTASSIUM CHLORIDE [Concomitant]
     Dosage: UNK, UNK
     Route: 042
     Dates: start: 20061006, end: 20061007
  34. POTASSIUM CHLORIDE [Concomitant]
     Dates: start: 20060925, end: 20060929
  35. PANTOLOC                           /01263201/ [Concomitant]
     Dosage: 40 MG, UNK
     Route: 042
     Dates: start: 20060923
  36. DOCUSATE [Concomitant]
     Dosage: 200 MG, UNK
     Route: 048
     Dates: start: 20060925
  37. MAGNESIUMSULFAT [Concomitant]
     Dosage: 2 G, QD
     Route: 042
     Dates: start: 20060923
  38. VESSEL                             /00111601/ [Concomitant]
     Dosage: 2 MG, QD
     Route: 042
     Dates: start: 20060928
  39. HEPARIN [Concomitant]
     Dosage: 25.000 UNITS, QD
     Route: 042
     Dates: start: 20060926
  40. CEFTRIAXONE [Concomitant]
     Dosage: 1 G, QD
     Route: 042
     Dates: start: 20060923
  41. HYDROCORTISON                      /00028601/ [Concomitant]
     Dosage: 60 MG, QD
     Route: 042
     Dates: start: 20060923
  42. PROPOFOL [Concomitant]
     Dosage: UNK, UNK
     Route: 042
  43. SODIUM PHOSPHATES [Concomitant]
     Route: 042
     Dates: start: 20060924, end: 20060926
  44. LIPITOR [Concomitant]
     Dosage: 80 MG, QD
     Route: 042
     Dates: start: 20061008, end: 20061011
  45. ROCURONIUM [Concomitant]
     Dosage: 50 MG, UNK
     Route: 042
     Dates: start: 20061011, end: 20061011

REACTIONS (5)
  - ACUTE RESPIRATORY DISTRESS SYNDROME [None]
  - ANOXIC ENCEPHALOPATHY [None]
  - HAEMATOLOGY TEST ABNORMAL [None]
  - PULMONARY EMBOLISM [None]
  - VENA CAVA THROMBOSIS [None]
